FAERS Safety Report 21190166 (Version 1)
Quarter: 2022Q3

REPORT INFORMATION
  Report Type: Spontaneous
  Country: US (occurrence: None)
  Receive Date: 20220809
  Receipt Date: 20220809
  Transmission Date: 20221026
  Serious: Yes (Hospitalization)
  Sender: FDA-Public Use
  Company Number: None

PATIENT
  Age: 70 Year
  Sex: Female

DRUGS (5)
  1. PROLIA [Suspect]
     Active Substance: DENOSUMAB
     Indication: Osteoporosis
     Dosage: 60 MG/ML ??INJECT 1 SYRINGE UNDER THE SKIN (SUBCUTANEOUS INJECTION) EVERY SIX MONTHS
     Route: 058
     Dates: start: 20210804
  2. PROLIA [Suspect]
     Active Substance: DENOSUMAB
     Dosage: OTHER QUANTITY : 1 SYRINGE;?OTHER FREQUENCY : EVERY SIX MONTHS;?
     Route: 058
  3. ADVAIR DISKU AER [Concomitant]
  4. ALBUTEROL [Concomitant]
  5. PROAIR HFA AER [Concomitant]

REACTIONS (1)
  - Pneumonia [None]

NARRATIVE: CASE EVENT DATE: 20220726
